FAERS Safety Report 7764779-3 (Version None)
Quarter: 2011Q3

REPORT INFORMATION
  Report Type: 
  Country: None (occurrence: None)
  Receive Date: 20110921
  Receipt Date: 20110921
  Transmission Date: 20111222
  Serious: Yes (Other)
  Sender: FDA-Public Use
  Company Number: None

PATIENT
  Age: 44 Year
  Sex: Female
  Weight: 91.5 kg

DRUGS (1)
  1. FLEBOGAMMA [Suspect]
     Indication: IMMUNODEFICIENCY COMMON VARIABLE
     Dosage: 20GM
     Route: 041
     Dates: start: 20110920, end: 20110920

REACTIONS (7)
  - CHEST DISCOMFORT [None]
  - BACK PAIN [None]
  - INFUSION RELATED REACTION [None]
  - DYSPNOEA [None]
  - DYSPEPSIA [None]
  - FLUSHING [None]
  - DYSGEUSIA [None]
